FAERS Safety Report 24531591 (Version 1)
Quarter: 2024Q4

REPORT INFORMATION
  Report Type: Report from Study
  Country: MX (occurrence: MX)
  Receive Date: 20241022
  Receipt Date: 20241022
  Transmission Date: 20250115
  Serious: No
  Sender: ROCHE
  Company Number: MX-ROCHE-3527717

PATIENT
  Age: 7 Year
  Sex: Male
  Weight: 21.0 kg

DRUGS (10)
  1. PULMOZYME [Suspect]
     Active Substance: DORNASE ALFA
     Indication: Cystic fibrosis
     Route: 055
     Dates: start: 20220422
  2. ALBUTEROL [Concomitant]
     Active Substance: ALBUTEROL
     Indication: Product used for unknown indication
     Dosage: 3 MILLIGRAMS BY VOLUME IN 3 MILLILITERS OF 0.9% PHYSIOLOGICAL SOLUTION
     Route: 055
  3. HYPERTONIC SOLUTIONS [Concomitant]
     Indication: Product used for unknown indication
     Dosage: 17.7% SODIUM CHLORIDE 2.2 MILLILITERS + 0.9% PHYSIOLOGICAL SOLUTION 3.8 MILLILITERS (6 MILLILITERS)
  4. TOBRAMYCIN [Concomitant]
     Active Substance: TOBRAMYCIN\TOBRAMYCIN SULFATE
     Indication: Product used for unknown indication
     Dosage: WITH PARI GLASS (41)
     Dates: start: 20240120
  5. AZITHROMYCIN [Concomitant]
     Active Substance: AZITHROMYCIN
     Dosage: 1 PILL 500 MG A DAY FOR 3 DAYS, ON MONDAYS, WEDNESDAYS AND FRIDAYS
  6. HEMOSIN-K [Concomitant]
     Indication: Product used for unknown indication
     Dosage: DOSE AND FREQUENCY WERE NOT REPORTED
  7. SECNIDAL [Concomitant]
     Indication: Product used for unknown indication
     Dosage: DOSE AND FREQUENCY WERE NOT REPORTED
  8. LEVOFLOXACIN [Concomitant]
     Active Substance: LEVOFLOXACIN
     Dosage: 1 TABLET EVERY 12 HOURS FOR 21 DAYS
  9. AMIKACIN [Concomitant]
     Active Substance: AMIKACIN
     Dosage: DOSE AND FREQUENCY WERE NOT REPORTED
  10. SULFAMETHOXAZOLE\TRIMETHOPRIM [Concomitant]
     Active Substance: SULFAMETHOXAZOLE\TRIMETHOPRIM
     Dosage: DOSE AND FREQUENCY WERE NOT REPORTED

REACTIONS (3)
  - Developmental delay [Unknown]
  - Phimosis [Not Recovered/Not Resolved]
  - Clonus [Unknown]
